FAERS Safety Report 5747272-9 (Version None)
Quarter: 2008Q2

REPORT INFORMATION
  Report Type: 
  Country: None (occurrence: None)
  Receive Date: 20080520
  Receipt Date: 20080513
  Transmission Date: 20081010
  Serious: Yes (Hospitalization)
  Sender: FDA-Public Use
  Company Number: CERZ-1000213

PATIENT
  Age: 20 Month
  Sex: Female
  Weight: 7 kg

DRUGS (1)
  1. CEREZYME [Suspect]
     Indication: GAUCHER'S DISEASE
     Dosage: 57.14 U/KG, Q2W, INTRAVENOUS
     Route: 042
     Dates: start: 20080419

REACTIONS (15)
  - ABDOMINAL PAIN [None]
  - ANOREXIA [None]
  - ANURIA [None]
  - COUGH [None]
  - CULTURE URINE POSITIVE [None]
  - DYSPNOEA [None]
  - EPILEPSY [None]
  - ESCHERICHIA URINARY TRACT INFECTION [None]
  - GENERAL PHYSICAL HEALTH DETERIORATION [None]
  - HYPERTENSION [None]
  - HYPOTENSION [None]
  - KLEBSIELLA INFECTION [None]
  - PYREXIA [None]
  - SEPTIC SHOCK [None]
  - VOMITING [None]
